FAERS Safety Report 4504668-0 (Version None)
Quarter: 2004Q4

REPORT INFORMATION
  Report Type: 
  Country: None (occurrence: None)
  Receive Date: 20041118
  Receipt Date: 20041112
  Transmission Date: 20050328
  Serious: Yes (Other)
  Sender: FDA-Public Use
  Company Number: PHBS2004BR15368

PATIENT
  Age: 63 Year
  Sex: Female
  Weight: 67 kg

DRUGS (2)
  1. APRESOLINE [Suspect]
     Indication: HYPERTENSION
     Dosage: 25 MG, Q8H
     Route: 048
     Dates: start: 20041110, end: 20041111
  2. ATACAND [Concomitant]
     Indication: HYPERTENSION
     Dosage: 1 DF, UNK
     Route: 048
     Dates: start: 20041108

REACTIONS (4)
  - DRY MOUTH [None]
  - EYE SWELLING [None]
  - HEADACHE [None]
  - TACHYCARDIA [None]
